FAERS Safety Report 5767705-1 (Version None)
Quarter: 2008Q2

REPORT INFORMATION
  Report Type: 
  Country: None (occurrence: None)
  Receive Date: 20080612
  Receipt Date: 20080604
  Transmission Date: 20081010
  Serious: Yes (Hospitalization, Other)
  Sender: FDA-Public Use
  Company Number: US-PFIZER INC-2006125205

PATIENT
  Sex: Female
  Weight: 64 kg

DRUGS (2)
  1. BEXTRA [Suspect]
     Indication: ARTHRALGIA
     Route: 048
  2. VIOXX [Suspect]
     Route: 048

REACTIONS (2)
  - CEREBROVASCULAR ACCIDENT [None]
  - MYOCARDIAL INFARCTION [None]
